FAERS Safety Report 16511276 (Version 2)
Quarter: 2019Q4

REPORT INFORMATION
  Report Type: Report from Study
  Country: JP (occurrence: JP)
  Receive Date: 20190702
  Receipt Date: 20191105
  Transmission Date: 20200122
  Serious: Yes (Other)
  Sender: FDA-Public Use
  Company Number: PHJP2019JP007910

PATIENT
  Age: 8 Year
  Sex: Female
  Weight: 19.3 kg

DRUGS (19)
  1. ILARIS [Suspect]
     Active Substance: CANAKINUMAB
     Dosage: 80 MG, UNK
     Route: 058
     Dates: start: 20181030
  2. COLCHICINE. [Concomitant]
     Active Substance: COLCHICINE
     Dosage: 2 MG, UNK
     Route: 065
     Dates: start: 20181123, end: 20181213
  3. ADALIMUMAB [Concomitant]
     Active Substance: ADALIMUMAB
     Indication: FAMILIAL MEDITERRANEAN FEVER
     Dosage: UNK
     Route: 058
     Dates: start: 20181227
  4. ADALIMUMAB [Concomitant]
     Active Substance: ADALIMUMAB
     Indication: CROHN^S DISEASE
  5. MIDAZOLAM [Concomitant]
     Active Substance: MIDAZOLAM HYDROCHLORIDE
     Indication: FAMILIAL MEDITERRANEAN FEVER
     Dosage: UNK
     Route: 041
  6. ROZEREM [Concomitant]
     Active Substance: RAMELTEON
     Indication: PROPHYLAXIS
     Dosage: UNK
     Route: 048
  7. FAMOTIDINE. [Concomitant]
     Active Substance: FAMOTIDINE
     Indication: FAMILIAL MEDITERRANEAN FEVER
     Dosage: UNK
     Route: 048
  8. SOLITA-T2 [Concomitant]
     Indication: PROPHYLAXIS
     Dosage: UNK
     Route: 048
  9. KETALAR [Concomitant]
     Active Substance: KETAMINE HYDROCHLORIDE
     Indication: FAMILIAL MEDITERRANEAN FEVER
     Dosage: UNK
     Route: 041
  10. OLOPATADINE HYDROCHLORIDE. [Concomitant]
     Active Substance: OLOPATADINE HYDROCHLORIDE
     Indication: PROPHYLAXIS
     Dosage: UNK
     Route: 048
  11. COLCHICINE. [Concomitant]
     Active Substance: COLCHICINE
     Dosage: 1 MG, UNK
     Route: 065
     Dates: start: 20160824, end: 20170104
  12. ATARAX-P [Concomitant]
     Active Substance: HYDROXYZINE HYDROCHLORIDE
     Indication: FAMILIAL MEDITERRANEAN FEVER
     Dosage: UNK
     Route: 041
  13. COLCHICINE. [Concomitant]
     Active Substance: COLCHICINE
     Indication: FAMILIAL MEDITERRANEAN FEVER
     Dosage: 0.4 MG, UNK
     Route: 048
     Dates: end: 201510
  14. PENTASA [Concomitant]
     Active Substance: MESALAMINE
     Indication: FAMILIAL MEDITERRANEAN FEVER
     Dosage: UNK
     Route: 048
  15. IBUPROFEN. [Concomitant]
     Active Substance: IBUPROFEN
     Indication: FAMILIAL MEDITERRANEAN FEVER
     Dosage: UNK
     Route: 048
  16. ILARIS [Suspect]
     Active Substance: CANAKINUMAB
     Indication: FAMILIAL MEDITERRANEAN FEVER
     Dosage: 80 MG, UNK
     Route: 058
     Dates: start: 20181016
  17. COLCHICINE. [Concomitant]
     Active Substance: COLCHICINE
     Dosage: 0.5 MG, UNK
     Route: 065
     Dates: start: 20180530, end: 20181122
  18. MAGMITT [Concomitant]
     Active Substance: MAGNESIUM OXIDE
     Indication: FAMILIAL MEDITERRANEAN FEVER
     Dosage: UNK
     Route: 048
  19. ILARIS [Suspect]
     Active Substance: CANAKINUMAB
     Dosage: 80 MG, UNK
     Route: 058
     Dates: start: 20181126, end: 20181205

REACTIONS (3)
  - Crohn^s disease [Recovering/Resolving]
  - Concomitant disease progression [Recovering/Resolving]
  - Abdominal pain [Recovering/Resolving]

NARRATIVE: CASE EVENT DATE: 20181029
